FAERS Safety Report 9028504 (Version 1)
Quarter: 2013Q1

REPORT INFORMATION
  Report Type: Spontaneous
  Country: JP (occurrence: JP)
  Receive Date: 20130124
  Receipt Date: 20130124
  Transmission Date: 20140127
  Serious: Yes (Hospitalization)
  Sender: FDA-Public Use
  Company Number: PHHY2013JP005923

PATIENT
  Age: 28 Year
  Sex: Female

DRUGS (6)
  1. TEGRETOL [Suspect]
     Indication: MANIA
     Dosage: 1200 MG, UNK
     Route: 048
  2. LIMAS [Concomitant]
     Dosage: 600 MG, UNK
     Route: 048
  3. CONTOMIN [Concomitant]
     Dosage: 100 MG, UNK
     Route: 048
  4. LEVOTOMIN [Concomitant]
     Route: 048
  5. HALCION [Concomitant]
  6. WYPAX [Concomitant]

REACTIONS (5)
  - Myocardial infarction [Unknown]
  - Arterial stenosis [Unknown]
  - Cardiac hypertrophy [Unknown]
  - Blood creatinine increased [Unknown]
  - Drug level increased [Unknown]
